FAERS Safety Report 5659143-7 (Version None)
Quarter: 2008Q1

REPORT INFORMATION
  Report Type: 
  Country: None (occurrence: None)
  Receive Date: 20080311
  Receipt Date: 20070530
  Transmission Date: 20080703
  Serious: No
  Sender: FDA-Public Use
  Company Number: US-BAYER-200711745BCC

PATIENT
  Sex: Female
  Weight: 59 kg

DRUGS (1)
  1. ALEVE [Suspect]
     Indication: MYALGIA
     Dosage: TOTAL DAILY DOSE: 220 MG  UNIT DOSE: 220 MG
     Route: 048
     Dates: start: 20070527

REACTIONS (6)
  - DIZZINESS [None]
  - HYPERSENSITIVITY [None]
  - PRURITUS [None]
  - STOMACH DISCOMFORT [None]
  - SWOLLEN TONGUE [None]
  - VOMITING [None]
